FAERS Safety Report 5886786-8 (Version None)
Quarter: 2008Q3

REPORT INFORMATION
  Report Type: 
  Country: None (occurrence: None)
  Receive Date: 20080917
  Receipt Date: 20080911
  Transmission Date: 20090109
  Serious: Yes (Other)
  Sender: FDA-Public Use
  Company Number: US-PURDUE-USA_2008_0034913

PATIENT
  Sex: Female

DRUGS (2)
  1. MORPHINE SULFATE [Suspect]
     Indication: CANCER PAIN
     Route: 065
  2. OXYCONTIN [Suspect]
     Indication: CANCER PAIN
     Route: 065

REACTIONS (7)
  - DRUG EFFECT DECREASED [None]
  - DRUG INEFFECTIVE [None]
  - GASTRIC DISORDER [None]
  - GASTROINTESTINAL CARCINOMA [None]
  - INTESTINAL OBSTRUCTION [None]
  - NAUSEA [None]
  - VOMITING [None]
